FAERS Safety Report 16823251 (Version 2)
Quarter: 2019Q4

REPORT INFORMATION
  Report Type: Report from Study
  Country: US (occurrence: US)
  Receive Date: 20190918
  Receipt Date: 20191018
  Transmission Date: 20200122
  Serious: Yes (Hospitalization, Other)
  Sender: FDA-Public Use
  Company Number: US-JNJFOC-20190920844

PATIENT
  Age: 82 Year
  Sex: Male

DRUGS (2)
  1. IMBRUVICA [Suspect]
     Active Substance: IBRUTINIB
     Indication: CHRONIC LYMPHOCYTIC LEUKAEMIA
     Dosage: 140 MG, QD
     Route: 048
     Dates: start: 20190726
  2. IMBRUVICA [Suspect]
     Active Substance: IBRUTINIB
     Route: 048
     Dates: start: 20190806, end: 20191007

REACTIONS (12)
  - Blood glucose decreased [Unknown]
  - Platelet count decreased [Not Recovered/Not Resolved]
  - Head injury [Unknown]
  - Haematuria [Not Recovered/Not Resolved]
  - Off label use [Unknown]
  - Fall [Unknown]
  - Incorrect dose administered [Unknown]
  - Increased tendency to bruise [Unknown]
  - Joint injury [Unknown]
  - Fatigue [Unknown]
  - Asthenia [Unknown]
  - Cystitis [Unknown]

NARRATIVE: CASE EVENT DATE: 20190726
